FAERS Safety Report 19765613 (Version 7)
Quarter: 2021Q4

REPORT INFORMATION
  Report Type: Spontaneous
  Country: CA (occurrence: CA)
  Receive Date: 20210831
  Receipt Date: 20211126
  Transmission Date: 20220303
  Serious: Yes (Other)
  Sender: FDA-Public Use
  Company Number: CA-CELLTRION INC.-2021CA011188

PATIENT

DRUGS (11)
  1. INFLECTRA [Suspect]
     Active Substance: INFLIXIMAB-DYYB
     Indication: Colitis ulcerative
     Dosage: 440 MG (AT HOSPITAL)
     Route: 042
     Dates: start: 20210502
  2. INFLECTRA [Suspect]
     Active Substance: INFLIXIMAB-DYYB
     Dosage: 440 MG (AT HOSPITAL)
     Route: 042
     Dates: start: 20210522
  3. INFLECTRA [Suspect]
     Active Substance: INFLIXIMAB-DYYB
     Dosage: 440 MG, 0, 2, 6 THEN EVERY 8 WEEKS
     Route: 042
     Dates: start: 20210621, end: 20210621
  4. INFLECTRA [Suspect]
     Active Substance: INFLIXIMAB-DYYB
     Dosage: 440 MG
     Route: 042
     Dates: start: 20210623, end: 20210623
  5. INFLECTRA [Suspect]
     Active Substance: INFLIXIMAB-DYYB
     Dosage: 440 MG, EVERY 4 WEEKS
     Route: 042
     Dates: start: 20210723
  6. INFLECTRA [Suspect]
     Active Substance: INFLIXIMAB-DYYB
     Dosage: 440 MG, EVERY 4 WEEKS
     Route: 042
     Dates: start: 20210723, end: 20210723
  7. INFLECTRA [Suspect]
     Active Substance: INFLIXIMAB-DYYB
     Dosage: 440 MG, EVERY 4 WEEKS
     Route: 042
     Dates: start: 20210818
  8. INFLECTRA [Suspect]
     Active Substance: INFLIXIMAB-DYYB
     Dosage: 7.5 MG/KG, EVERY 4 WEEKS (ROUND UP TO CLOSEST 50MG, 750 MG)
     Route: 042
     Dates: start: 20210818, end: 20210818
  9. INFLECTRA [Suspect]
     Active Substance: INFLIXIMAB-DYYB
     Dosage: 1000 MG, EVERY 4 WEEKS
     Route: 042
     Dates: start: 20210916
  10. ANUSOL HC [BENZYL BENZOATE;BISMUTH OXIDE;BISMUTH SUBGALLATE;HYDROCORTI [Concomitant]
     Dosage: UNK
  11. PREDNISONE [Concomitant]
     Active Substance: PREDNISONE
     Dosage: UNK

REACTIONS (19)
  - Colitis ulcerative [Not Recovered/Not Resolved]
  - Therapy non-responder [Unknown]
  - Drug level below therapeutic [Not Recovered/Not Resolved]
  - Acne [Unknown]
  - Haemoglobin decreased [Unknown]
  - Haematocrit decreased [Unknown]
  - Lymphocyte count increased [Unknown]
  - Monocyte count increased [Unknown]
  - Neutrophil count increased [Unknown]
  - Platelet count increased [Unknown]
  - Rash [Not Recovered/Not Resolved]
  - Red blood cell sedimentation rate increased [Unknown]
  - Rectal tenesmus [Unknown]
  - Rash pustular [Not Recovered/Not Resolved]
  - Serum ferritin decreased [Unknown]
  - Vitamin D decreased [Unknown]
  - Weight decreased [Unknown]
  - White blood cell count increased [Unknown]
  - Off label use [Unknown]

NARRATIVE: CASE EVENT DATE: 20210101
